FAERS Safety Report 7767265-X (Version None)
Quarter: 2011Q3

REPORT INFORMATION
  Report Type: 
  Country: None (occurrence: None)
  Receive Date: 20110922
  Receipt Date: 20100726
  Transmission Date: 20111222
  Serious: No
  Sender: FDA-Public Use
  Company Number: US-ASTRAZENECA-2010SE35217

PATIENT
  Age: 32 Year
  Sex: Female
  Weight: 72.6 kg

DRUGS (11)
  1. SEROQUEL XR [Suspect]
     Route: 048
     Dates: start: 20090901
  2. SEROQUEL XR [Suspect]
     Route: 048
     Dates: start: 20090901
  3. SEROQUEL XR [Suspect]
     Indication: ANXIETY
     Route: 048
     Dates: end: 20090901
  4. SEROQUEL XR [Suspect]
     Route: 048
     Dates: start: 20090901
  5. SEROQUEL XR [Suspect]
     Route: 048
     Dates: start: 20090901
  6. SEROQUEL XR [Suspect]
     Indication: DEPRESSION
     Route: 048
     Dates: end: 20090901
  7. SEROQUEL XR [Suspect]
     Indication: PANIC DISORDER
     Route: 048
     Dates: end: 20090901
  8. SEROQUEL XR [Suspect]
     Route: 048
     Dates: start: 20090901
  9. SEROQUEL XR [Suspect]
     Indication: INSOMNIA
     Route: 048
     Dates: end: 20090901
  10. SEROQUEL XR [Suspect]
     Indication: MOOD SWINGS
     Route: 048
     Dates: end: 20090901
  11. XANAX [Concomitant]
     Indication: ANXIETY
     Route: 048

REACTIONS (10)
  - DIABETES MELLITUS [None]
  - DRUG DOSE OMISSION [None]
  - PSYCHOTIC DISORDER [None]
  - HOSPITALISATION [None]
  - DYSARTHRIA [None]
  - MYALGIA [None]
  - MUSCLE SPASMS [None]
  - WEIGHT INCREASED [None]
  - FIBROMYALGIA [None]
  - INCREASED APPETITE [None]
